FAERS Safety Report 21233204 (Version 1)
Quarter: 2022Q3

REPORT INFORMATION
  Report Type: Spontaneous
  Country: US (occurrence: US)
  Receive Date: 20220819
  Receipt Date: 20220819
  Transmission Date: 20221027
  Serious: No
  Sender: FDA-Public Use
  Company Number: US-PFIZER INC-PV202200045455

PATIENT
  Age: 77 Year
  Sex: Male

DRUGS (2)
  1. PAXLOVID [Suspect]
     Active Substance: NIRMATRELVIR\RITONAVIR
     Indication: COVID-19 treatment
     Dosage: UNK, DAILY
     Route: 048
     Dates: start: 20220721, end: 20220726
  2. LOVASTATIN [Suspect]
     Active Substance: LOVASTATIN
     Dosage: EVERY EVENING WITH A MEAL
     Route: 048

REACTIONS (1)
  - Contraindicated product administered [Unknown]

NARRATIVE: CASE EVENT DATE: 20220101
